FAERS Safety Report 4931527-1 (Version None)
Quarter: 2006Q1

REPORT INFORMATION
  Report Type: 
  Country: None (occurrence: None)
  Receive Date: 20060303
  Receipt Date: 20050705
  Transmission Date: 20060701
  Serious: Yes (Hospitalization, Other)
  Sender: FDA-Public Use
  Company Number: US-ABBOTT-05P-163-0304956-00

PATIENT
  Sex: Male
  Weight: 85.806 kg

DRUGS (13)
  1. HUMIRA [Suspect]
     Indication: RHEUMATOID ARTHRITIS
     Route: 058
     Dates: start: 20040101, end: 20050101
  2. HUMIRA [Suspect]
     Route: 058
     Dates: start: 20060213
  3. VERAPAMIL [Concomitant]
     Indication: BLOOD PRESSURE INCREASED
     Route: 048
  4. HYDROCHLOROTHIAZIDE [Concomitant]
     Indication: BLOOD PRESSURE INCREASED
     Route: 048
  5. CAPTOPRIL [Concomitant]
     Indication: BLOOD PRESSURE INCREASED
     Route: 048
  6. PANTOPRAZOLE [Concomitant]
     Indication: GASTRIC DISORDER
     Route: 048
  7. CALCIUM CARBONATE [Concomitant]
     Indication: MINERAL SUPPLEMENTATION
     Route: 048
  8. SALBUTAMOL [Concomitant]
     Indication: EMPHYSEMA
  9. IRBESARTAN [Concomitant]
     Indication: BLOOD PRESSURE INCREASED
     Dates: start: 20050101
  10. PROPACET 100 [Concomitant]
     Indication: PAIN
     Route: 048
  11. ALUMINUM HYDROXIDE [Concomitant]
     Indication: GASTRIC DISORDER
     Route: 048
  12. PREDNISONE [Concomitant]
     Indication: RHEUMATOID ARTHRITIS
     Dosage: 30/60MG
     Route: 048
  13. RANITIDINE HYDROCHLORIDE [Concomitant]
     Indication: GASTRIC DISORDER
     Route: 048

REACTIONS (10)
  - AORTIC ANEURYSM [None]
  - CARDIAC DISORDER [None]
  - CORONARY ARTERY DISEASE [None]
  - CUSHING'S SYNDROME [None]
  - DIABETES MELLITUS NON-INSULIN-DEPENDENT [None]
  - EMPHYSEMA [None]
  - MYASTHENIA GRAVIS [None]
  - NECK PAIN [None]
  - PAIN IN EXTREMITY [None]
  - TRANSIENT ISCHAEMIC ATTACK [None]
